FAERS Safety Report 17175664 (Version 1)
Quarter: 2019Q4

REPORT INFORMATION
  Report Type: Spontaneous
  Country: AT (occurrence: AT)
  Receive Date: 20191219
  Receipt Date: 20191219
  Transmission Date: 20200122
  Serious: Yes (Other)
  Sender: FDA-Public Use
  Company Number: AT-TEVA-2019-AT-1152795

PATIENT
  Age: 49 Year
  Sex: Female
  Weight: 62 kg

DRUGS (12)
  1. CARVEDILOL12,5 TABLETTEN [Suspect]
     Active Substance: CARVEDILOL
     Indication: HYPERTENSION
     Dosage: 25MG 2 DOSAGE FORMS
     Route: 048
     Dates: start: 20191016, end: 20191029
  2. DEPENDEX 50 MG - FILMTABLETTEN [Suspect]
     Active Substance: NALTREXONE HYDROCHLORIDE
     Indication: ALCOHOLISM
     Route: 048
     Dates: start: 20191016, end: 20191024
  3. PREGABALIN. [Concomitant]
     Active Substance: PREGABALIN
     Indication: TENSION
     Dosage: 25MG-25MG-25MG-75MG
     Route: 048
     Dates: start: 20191017
  4. TRITTICO 150MG RETARDTABLETTEN [Concomitant]
     Indication: SLEEP DISORDER
     Dosage: 100 MG
     Route: 048
     Dates: start: 20191017, end: 20191024
  5. NEUROMULTIVIT [Concomitant]
     Active Substance: CYANOCOBALAMIN\PYRIDOXINE\THIAMINE
     Indication: HYPOVITAMINOSIS
     Dosage: 3 DOSAGE FORMS
     Route: 048
     Dates: start: 20191016, end: 20191101
  6. SERTRALIN [Concomitant]
     Active Substance: SERTRALINE HYDROCHLORIDE
     Indication: DEPRESSION
     Dosage: 50 MG
     Route: 048
     Dates: start: 20191022, end: 20191027
  7. DIBONDRIN DRAGEES [Concomitant]
     Indication: SLEEP DISORDER
     Dosage: 1 DOSAGE FORMS
     Route: 048
     Dates: start: 20191023, end: 20191101
  8. PRAXITEN [Concomitant]
     Active Substance: OXAZEPAM
     Indication: TENSION
     Dosage: 45 MG
     Route: 048
     Dates: start: 20191017, end: 20191023
  9. SERTRALIN [Concomitant]
     Active Substance: SERTRALINE HYDROCHLORIDE
     Indication: DEPRESSION
     Dosage: 25 MG
     Route: 048
     Dates: start: 20191018, end: 20191021
  10. SERTRALIN [Concomitant]
     Active Substance: SERTRALINE HYDROCHLORIDE
     Indication: DEPRESSION
     Dosage: 75 MG
     Route: 048
     Dates: start: 20191028
  11. AMLODIPIN 5 MG TABLETTEN [Concomitant]
     Indication: HYPERTENSION
     Dosage: 1 DOSAGE FORMS
     Route: 048
     Dates: start: 20191016, end: 20191101
  12. PRAXITEN [Concomitant]
     Active Substance: OXAZEPAM
     Indication: TENSION
     Dosage: 30 MG
     Route: 048
     Dates: start: 20191024, end: 20191101

REACTIONS (2)
  - Oedema peripheral [Recovered/Resolved]
  - Right ventricular failure [Recovered/Resolved]

NARRATIVE: CASE EVENT DATE: 20191019
